FAERS Safety Report 14840227 (Version 2)
Quarter: 2025Q2

REPORT INFORMATION
  Report Type: Spontaneous
  Country: US (occurrence: US)
  Receive Date: 20180503
  Receipt Date: 20250605
  Transmission Date: 20250717
  Serious: Yes (Life-Threatening, Hospitalization, Other)
  Sender: ASTELLAS
  Company Number: US-ASTELLAS-2018US020519

PATIENT
  Age: 31 Year
  Sex: Male

DRUGS (3)
  1. TACROLIMUS [Suspect]
     Active Substance: TACROLIMUS
     Indication: Renal transplant
     Route: 065
  2. MYFORTIC [Concomitant]
     Active Substance: MYCOPHENOLATE SODIUM
     Indication: Renal transplant
     Route: 065
  3. PREDNISONE [Concomitant]
     Active Substance: PREDNISONE
     Indication: Renal transplant
     Route: 065

REACTIONS (6)
  - Umbilical hernia [Unknown]
  - Erythema [Recovered/Resolved]
  - Acute respiratory failure [Recovered/Resolved]
  - Metapneumovirus infection [Recovered/Resolved]
  - Pulmonary congestion [Recovered/Resolved]
  - Atelectasis [Recovered/Resolved]
